FAERS Safety Report 5808623-X (Version None)
Quarter: 2008Q3

REPORT INFORMATION
  Report Type: 
  Country: None (occurrence: None)
  Receive Date: 20080714
  Receipt Date: 20080703
  Transmission Date: 20090109
  Serious: Yes (Hospitalization, Other)
  Sender: FDA-Public Use
  Company Number: GB-JNJFOC-20080702014

PATIENT
  Age: 8 Decade
  Sex: Female
  Weight: 85 kg

DRUGS (8)
  1. REMICADE [Suspect]
     Route: 042
  2. REMICADE [Suspect]
     Indication: RHEUMATOID ARTHRITIS
     Route: 042
  3. LEFLUNOMIDE [Concomitant]
  4. PREDNISOLONE [Concomitant]
  5. ACETAMINOPHEN W/ CODEINE [Concomitant]
  6. FENTANYL TRANSDERMAL SYSTEM [Concomitant]
  7. LANSOPRAZOLE [Concomitant]
  8. DIDRONEL [Concomitant]

REACTIONS (3)
  - LOWER RESPIRATORY TRACT INFECTION [None]
  - SALMONELLOSIS [None]
  - URINARY TRACT INFECTION [None]
